FAERS Safety Report 5723390-6 (Version None)
Quarter: 2008Q2

REPORT INFORMATION
  Report Type: 
  Country: None (occurrence: None)
  Receive Date: 20080430
  Receipt Date: 20080421
  Transmission Date: 20081010
  Serious: Yes (Other)
  Sender: FDA-Public Use
  Company Number: US-WYE-H03725408

PATIENT
  Sex: Female

DRUGS (2)
  1. LYBREL [Suspect]
     Dosage: UNKNOWN
     Route: 065
  2. LUPRON [Concomitant]
     Indication: ENDOMETRIOSIS
     Dosage: UNKNOWN
     Route: 065

REACTIONS (2)
  - CONVULSION [None]
  - DEEP VEIN THROMBOSIS [None]
